FAERS Safety Report 8877604 (Version 1)
Quarter: 2012Q4

REPORT INFORMATION
  Report Type: Spontaneous
  Country: US (occurrence: None)
  Receive Date: 20121031
  Receipt Date: 20121031
  Transmission Date: 20130627
  Serious: Yes (Hospitalization)
  Sender: FDA-Public Use
  Company Number: None

PATIENT
  Age: 31 Year
  Sex: Female
  Weight: 72.12 kg

DRUGS (1)
  1. MIRENA [Suspect]
     Indication: BIRTH CONTROL
     Route: 019
     Dates: start: 20090219, end: 20110923

REACTIONS (6)
  - Migraine with aura [None]
  - Pregnancy with contraceptive device [None]
  - Maternal exposure during pregnancy [None]
  - Device dislocation [None]
  - Uterine perforation [None]
  - Adhesion [None]
